FAERS Safety Report 8280580-9 (Version None)
Quarter: 2012Q2

REPORT INFORMATION
  Report Type: 
  Country: None (occurrence: None)
  Receive Date: 20120412
  Receipt Date: 20111005
  Transmission Date: 20120825
  Serious: No
  Sender: FDA-Public Use
  Company Number: US-ASTRAZENECA-2010SE53892

PATIENT
  Age: 63 Year
  Sex: Female

DRUGS (3)
  1. NEXIUM [Suspect]
     Route: 048
  2. NEXIUM [Suspect]
     Route: 048
  3. CRESTOR [Suspect]
     Route: 048

REACTIONS (8)
  - BURN OESOPHAGEAL [None]
  - DRUG DOSE OMISSION [None]
  - INCORRECT DOSE ADMINISTERED [None]
  - GASTROOESOPHAGEAL REFLUX DISEASE [None]
  - PANIC ATTACK [None]
  - BARRETT'S OESOPHAGUS [None]
  - DYSPHAGIA [None]
  - DISCOMFORT [None]
